FAERS Safety Report 7482504-0 (Version None)
Quarter: 2011Q2

REPORT INFORMATION
  Report Type: 
  Country: None (occurrence: None)
  Receive Date: 20110516
  Receipt Date: 20110412
  Transmission Date: 20111010
  Serious: Yes (Other)
  Sender: FDA-Public Use
  Company Number: US-BAYER-201015501NA

PATIENT
  Age: 21 Year
  Sex: Female
  Weight: 88.435 kg

DRUGS (5)
  1. YASMIN [Suspect]
     Indication: CONTRACEPTION
     Dosage: UNK UNK, UNK
     Route: 048
     Dates: start: 20050701, end: 20070701
  2. KLONOPIN [Concomitant]
     Indication: ANXIETY
     Dosage: 0.5 MG, QD
     Dates: start: 20010101
  3. WELLBUTRIN [Concomitant]
     Indication: DEPRESSION
     Dosage: 150 MG, BID
     Dates: start: 20050101
  4. LITHIUM [Concomitant]
     Indication: BIPOLAR I DISORDER
     Dosage: 300 MG, TID
     Dates: start: 20010101
  5. ABILIFY [Concomitant]
     Indication: MOOD SWINGS
     Dosage: 15 MG, QD
     Dates: start: 20030101

REACTIONS (5)
  - IRRITABLE BOWEL SYNDROME [None]
  - CHOLECYSTITIS CHRONIC [None]
  - GALLBLADDER DISORDER [None]
  - NAUSEA [None]
  - ABDOMINAL PAIN [None]
